FAERS Safety Report 9240381 (Version 1)
Quarter: 2013Q2

REPORT INFORMATION
  Report Type: Spontaneous
  Country: IT (occurrence: IT)
  Receive Date: 20130418
  Receipt Date: 20130418
  Transmission Date: 20140414
  Serious: Yes (Hospitalization)
  Sender: FDA-Public Use
  Company Number: IT-MYLANLABS-2013S1007780

PATIENT
  Age: 7 Year
  Sex: Male

DRUGS (5)
  1. LEVOFLOXACIN [Suspect]
     Indication: TUBERCULOSIS
     Route: 048
     Dates: start: 20130206, end: 20130226
  2. TRECATOR [Suspect]
     Indication: TUBERCULOSIS
     Route: 048
     Dates: start: 20130206, end: 20130226
  3. TERIZIDON [Concomitant]
     Indication: TUBERCULOSIS
     Route: 048
     Dates: start: 20130206, end: 20130226
  4. PIRALDINA [Concomitant]
     Indication: TUBERCULOSIS
     Route: 048
     Dates: start: 20130206, end: 20130226
  5. ETAPIAM [Concomitant]
     Indication: TUBERCULOSIS
     Route: 048
     Dates: start: 20130206, end: 20130226

REACTIONS (5)
  - Conjunctivitis [Recovered/Resolved]
  - Erythema [Recovered/Resolved]
  - Urticaria [Recovered/Resolved]
  - Vomiting [Recovered/Resolved]
  - Pruritus generalised [Recovered/Resolved]
